FAERS Safety Report 4771930-6 (Version None)
Quarter: 2005Q3

REPORT INFORMATION
  Report Type: 
  Country: None (occurrence: None)
  Receive Date: 20050916
  Receipt Date: 20050906
  Transmission Date: 20060218
  Serious: Yes (Disabling)
  Sender: FDA-Public Use
  Company Number: FR-GLAXOSMITHKLINE-B0393702A

PATIENT
  Age: 84 Year
  Sex: Female

DRUGS (2)
  1. ARIXTRA [Suspect]
     Dosage: 2.5MG PER DAY
     Route: 058
     Dates: start: 20050101, end: 20050101
  2. DYNASTAT [Concomitant]
     Indication: PAIN
     Dosage: 1INJ SINGLE DOSE
     Dates: start: 20050101, end: 20050101

REACTIONS (2)
  - PARALYSIS [None]
  - SPINAL HAEMATOMA [None]
